FAERS Safety Report 8978751 (Version 4)
Quarter: 2013Q2

REPORT INFORMATION
  Report Type: Report from Study
  Country: PL (occurrence: PL)
  Receive Date: 20121220
  Receipt Date: 20130508
  Transmission Date: 20140414
  Serious: Yes (Hospitalization)
  Sender: FDA-Public Use
  Company Number: PL-ROCHE-1166111

PATIENT
  Age: 53 Year
  Sex: Female
  Weight: 49 kg

DRUGS (21)
  1. BEVACIZUMAB [Suspect]
     Indication: NON-SMALL CELL LUNG CANCER
     Dosage: LAST DOSE PRIOR TO SAE 675 MG ON 23/OCT/2012
     Route: 042
     Dates: start: 20120629
  2. PACLITAXEL [Suspect]
     Indication: NON-SMALL CELL LUNG CANCER
     Dosage: MOST RECENT DOSE PRIOR TO SAE 227.2 MG ON 23/OCT/2012
     Route: 042
     Dates: start: 20120629
  3. CARBOPLATIN [Suspect]
     Indication: NON-SMALL CELL LUNG CANCER
     Dosage: MOST RECENT DOSE PRIOR TO SAE 510.6 MG ON 23/OCT/2012
     Route: 042
     Dates: start: 20120629
  4. OXYCONTIN [Concomitant]
     Route: 048
     Dates: start: 20120502
  5. PARACETAMOL [Concomitant]
     Route: 048
     Dates: start: 20120502
  6. PABI-DEXAMETHASON [Concomitant]
     Route: 048
     Dates: start: 20120626
  7. CONTIX [Concomitant]
     Route: 048
     Dates: start: 20120626
  8. ESTAZOLAM [Concomitant]
     Indication: DEPRESSION
     Route: 048
     Dates: start: 20120502
  9. BISOCARD [Concomitant]
     Indication: ATRIAL FIBRILLATION
     Route: 048
     Dates: start: 20120521
  10. MILURIT [Concomitant]
     Route: 048
     Dates: start: 20120626
  11. CYCLONAMINE [Concomitant]
     Route: 048
     Dates: start: 20120820
  12. ASPARGIN [Concomitant]
     Indication: NEUROPATHY PERIPHERAL
     Route: 048
     Dates: start: 20120731
  13. DEXAVEN (POLAND) [Concomitant]
     Route: 042
     Dates: start: 20120629
  14. CLEMASTINUM [Concomitant]
     Route: 042
     Dates: start: 20120629
  15. ZANTAC [Concomitant]
     Route: 042
     Dates: start: 20120629
  16. 0.9% NACL [Concomitant]
     Route: 042
     Dates: start: 20120629
  17. FUROSEMIDE [Concomitant]
     Route: 042
     Dates: start: 20120626
  18. 5% GLUCOSE SOLUTION [Concomitant]
     Route: 042
     Dates: start: 20120630
  19. MEGACE [Concomitant]
     Indication: WEIGHT DECREASED
     Route: 048
     Dates: start: 20120820
  20. RUTINOSCORBIN [Concomitant]
     Route: 048
     Dates: start: 20120821
  21. PLACEBO [Suspect]
     Indication: NON-SMALL CELL LUNG CANCER
     Dosage: LAST DOSE PRIOR TO SAE 23/OCT/2012
     Route: 042
     Dates: start: 20120629

REACTIONS (1)
  - Herpes zoster [Recovered/Resolved]
